FAERS Safety Report 8875651 (Version 1)
Quarter: 2012Q4

REPORT INFORMATION
  Report Type: 
  Country: US (occurrence: US)
  Receive Date: 20121030
  Receipt Date: 20121030
  Transmission Date: 20130627
  Serious: Yes (Other)
  Sender: FDA-Public Use
  Company Number: CHPA2011US017210

PATIENT
  Age: 68 Year
  Sex: Female

DRUGS (6)
  1. MAALOX TOTAL RELIEF [Suspect]
     Indication: ABDOMINAL PAIN UPPER
     Dosage: 3 TSP, 2-3 times daily
     Route: 048
     Dates: start: 2009
  2. UNSPECIFIED INGREDIENT [Suspect]
     Dosage: Unk, Unk
  3. PROTONIX ^PHARMACIA^ [Concomitant]
  4. PRILOSEC [Concomitant]
  5. ZANTAC [Concomitant]
  6. TAGAMET [Concomitant]

REACTIONS (5)
  - Influenza [Recovered/Resolved]
  - Malaise [Recovered/Resolved]
  - Abdominal discomfort [Recovered/Resolved]
  - Therapeutic response unexpected [Unknown]
  - Expired drug administered [Unknown]
